FAERS Safety Report 9425423 (Version 1)
Quarter: 2013Q3

REPORT INFORMATION
  Report Type: Spontaneous
  Country: US (occurrence: US)
  Receive Date: 20130729
  Receipt Date: 20130729
  Transmission Date: 20140515
  Serious: Yes (Other)
  Sender: FDA-Public Use
  Company Number: US-BAYER-2013-088063

PATIENT
  Age: 34 Year
  Sex: Female

DRUGS (8)
  1. OCELLA [Suspect]
  2. YASMIN [Suspect]
  3. ONDANSETRON [Concomitant]
  4. OXYCODONE [Concomitant]
  5. IBUPROFEN [Concomitant]
  6. HYDROCODONE/ACETAMINOPHEN [Concomitant]
  7. PANTOPRAZOLE [Concomitant]
  8. FLUOXETINE [Concomitant]

REACTIONS (3)
  - Vena cava thrombosis [Recovered/Resolved]
  - Thrombophlebitis superficial [Recovered/Resolved]
  - Thrombophlebitis superficial [None]
